FAERS Safety Report 4975843-6 (Version None)
Quarter: 2006Q2

REPORT INFORMATION
  Report Type: 
  Country: None (occurrence: None)
  Receive Date: 20060411
  Receipt Date: 20060327
  Transmission Date: 20061013
  Serious: Yes (Death)
  Sender: FDA-Public Use
  Company Number: 2006BH006692

PATIENT
  Sex: Female

DRUGS (2)
  1. GENTAMICIN [Suspect]
     Indication: ESCHERICHIA INFECTION
     Dosage: 60 MG; EVERY DAY; IM
     Route: 030
  2. NORFLOXACIN [Concomitant]

REACTIONS (5)
  - DIALYSIS [None]
  - NEPHROPATHY TOXIC [None]
  - NEUROTOXICITY [None]
  - RENAL FAILURE CHRONIC [None]
  - VOMITING [None]
